FAERS Safety Report 8821446 (Version 1)
Quarter: 2012Q4

REPORT INFORMATION
  Report Type: Report from Study
  Country: BR (occurrence: BR)
  Receive Date: 20121002
  Receipt Date: 20121002
  Transmission Date: 20130627
  Serious: Yes (Hospitalization)
  Sender: FDA-Public Use
  Company Number: BR-ABBOTT-12P-020-0988453-00

PATIENT
  Age: 34 Year
  Sex: Female
  Weight: 49.2 kg

DRUGS (8)
  1. HUMIRA [Suspect]
     Indication: JUVENILE ARTHRITIS
     Route: 058
     Dates: start: 20120906, end: 20120917
  2. PREDNISONE [Concomitant]
     Indication: PAIN
     Route: 048
     Dates: start: 1992
  3. LOSARTAN POTASSIUM [Concomitant]
     Indication: HYPERTENSION
     Route: 048
     Dates: start: 2010
  4. CALDE [Concomitant]
     Indication: VITAMIN SUPPLEMENTATION
     Dosage: At lunch time
     Route: 048
     Dates: start: 2009
  5. DEPURA [Concomitant]
     Indication: VITAMIN SUPPLEMENTATION
     Route: 048
     Dates: start: 2009
  6. PROLIA [Concomitant]
     Indication: OSTEOPOROSIS
     Dosage: One injection every six months
     Route: 058
     Dates: start: 201206
  7. NOVALGINA [Concomitant]
     Indication: PAIN
     Route: 048
     Dates: start: 201208
  8. AMLODIPINE [Concomitant]
     Indication: HYPERTENSION
     Route: 048
     Dates: start: 201103

REACTIONS (5)
  - Pruritus [Recovering/Resolving]
  - Skin discolouration [Recovering/Resolving]
  - Erythema [Recovering/Resolving]
  - Dermatitis allergic [Recovering/Resolving]
  - Rash macular [Recovering/Resolving]
